FAERS Safety Report 9042218 (Version 1)
Quarter: 2013Q1

REPORT INFORMATION
  Report Type: Report from Study
  Country: US (occurrence: US)
  Receive Date: 20130129
  Receipt Date: 20130129
  Transmission Date: 20140127
  Serious: No
  Sender: FDA-Public Use
  Company Number: US-ABBOTT-12P-163-0907054-00

PATIENT
  Sex: 0

DRUGS (4)
  1. HUMIRA 40 MG/0.8 ML PEN [Suspect]
     Indication: PSORIASIS
     Route: 058
     Dates: start: 20110120
  2. CARTIA [Concomitant]
     Indication: HYPERTENSION
  3. LOSARTAN/HCTZ [Concomitant]
     Indication: HYPERTENSION
  4. METOPROLOL [Concomitant]
     Indication: HYPERTENSION

REACTIONS (2)
  - Hypoaesthesia [Not Recovered/Not Resolved]
  - Paraesthesia [Not Recovered/Not Resolved]
